FAERS Safety Report 12174234 (Version 18)
Quarter: 2022Q1

REPORT INFORMATION
  Report Type: Other
  Country: CA (occurrence: None)
  Receive Date: 20160314
  Receipt Date: 20220217
  Transmission Date: 20220423
  Serious: Yes (Hospitalization, Other)
  Sender: FDA-Public Use
  Company Number: CA-ROCHE-1577661

PATIENT
  Age: 37 Year
  Sex: Female
  Weight: 91.1 kg

DRUGS (20)
  1. RITUXAN [Suspect]
     Active Substance: RITUXIMAB
     Indication: Neuromyelitis optica spectrum disorder
     Dosage: RECENT RITUXIMAB INFUSION: ON 06/JAN/2017
     Route: 042
     Dates: start: 20150512, end: 20150602
  2. RITUXAN [Suspect]
     Active Substance: RITUXIMAB
     Indication: Neuromyelitis optica spectrum disorder
     Route: 042
     Dates: start: 20160309, end: 20181123
  3. RITUXAN [Suspect]
     Active Substance: RITUXIMAB
     Route: 042
     Dates: start: 20181123
  4. RITUXAN [Suspect]
     Active Substance: RITUXIMAB
     Route: 042
     Dates: start: 20181109
  5. RITUXAN [Suspect]
     Active Substance: RITUXIMAB
     Route: 042
     Dates: start: 20101207, end: 20190425
  6. RITUXAN [Suspect]
     Active Substance: RITUXIMAB
     Route: 042
     Dates: start: 20100920
  7. DIPHENHYDRAMINE HYDROCHLORIDE [Concomitant]
     Active Substance: DIPHENHYDRAMINE HYDROCHLORIDE
     Route: 048
     Dates: start: 20150512
  8. ACETAMINOPHEN [Concomitant]
     Active Substance: ACETAMINOPHEN
     Route: 048
     Dates: start: 20150512
  9. METHYLPREDNISOLONE [Concomitant]
     Active Substance: METHYLPREDNISOLONE
     Indication: Premedication
     Route: 042
     Dates: start: 20150512
  10. BACLOFEN [Concomitant]
     Active Substance: BACLOFEN
     Dosage: IN TRANSITION TO NEUROTIN NOS
  11. LYRICA [Concomitant]
     Active Substance: PREGABALIN
     Dosage: IN TRANSITION TO NEUROTIN
  12. IMURAN [Concomitant]
     Active Substance: AZATHIOPRINE
  13. PANTOPRAZOLE SODIUM [Concomitant]
     Active Substance: PANTOPRAZOLE SODIUM
  14. CELEXA [Concomitant]
     Active Substance: CITALOPRAM HYDROBROMIDE
  15. PINAVERIUM BROMIDE [Concomitant]
     Active Substance: PINAVERIUM BROMIDE
  16. TEGRETOL [Concomitant]
     Active Substance: CARBAMAZEPINE
  17. ELAVIL [Concomitant]
     Active Substance: AMITRIPTYLINE HYDROCHLORIDE
  18. PREVNAR [Concomitant]
     Active Substance: PNEUMOCOCCAL 7-VALENT CONJUGATE VACCINE (DIPHTHERIA CRM197 PROTEIN)
     Dates: start: 20180805, end: 20180805
  19. NEURONTIN [Concomitant]
     Active Substance: GABAPENTIN
  20. RITALIN [Concomitant]
     Active Substance: METHYLPHENIDATE HYDROCHLORIDE

REACTIONS (39)
  - Clostridium difficile infection [Recovered/Resolved]
  - Pneumonia [Not Recovered/Not Resolved]
  - Neuromyelitis optica spectrum disorder [Unknown]
  - Heart rate increased [Unknown]
  - Hypoaesthesia [Unknown]
  - Aphonia [Recovering/Resolving]
  - Pain in extremity [Recovered/Resolved]
  - Muscular weakness [Unknown]
  - Discomfort [Unknown]
  - Infusion related reaction [Recovered/Resolved]
  - Peripheral swelling [Recovering/Resolving]
  - Alopecia [Recovering/Resolving]
  - Diarrhoea [Recovered/Resolved]
  - Fatigue [Not Recovered/Not Resolved]
  - Gastroenteritis [Recovered/Resolved]
  - Sinusitis [Unknown]
  - Oedema peripheral [Unknown]
  - Headache [Unknown]
  - Cough [Not Recovered/Not Resolved]
  - Varicose vein [Unknown]
  - Sleep apnoea syndrome [Unknown]
  - Medication error [Unknown]
  - Off label use [Unknown]
  - Immunoglobulins decreased [Unknown]
  - Respiratory tract infection [Recovering/Resolving]
  - Productive cough [Recovering/Resolving]
  - Weight increased [Unknown]
  - Blood pressure diastolic abnormal [Unknown]
  - Heart rate increased [Unknown]
  - Body temperature increased [Unknown]
  - Influenza [Recovered/Resolved]
  - Dysuria [Recovered/Resolved]
  - Hypoaesthesia [Recovered/Resolved]
  - Immunodeficiency [Unknown]
  - Blood pressure systolic increased [Unknown]
  - Blood pressure fluctuation [Unknown]
  - Oral herpes [Unknown]
  - Scab [Unknown]
  - Respiratory rate increased [Unknown]

NARRATIVE: CASE EVENT DATE: 20150512
